FAERS Safety Report 24868283 (Version 1)
Quarter: 2025Q1

REPORT INFORMATION
  Report Type: Spontaneous
  Country: US (occurrence: None)
  Receive Date: 20250120
  Receipt Date: 20250120
  Transmission Date: 20250408
  Serious: No
  Sender: FDA-CTU
  Company Number: None

PATIENT
  Age: 77 Year
  Sex: Female
  Weight: 126 kg

DRUGS (19)
  1. ZEPBOUND [Suspect]
     Active Substance: TIRZEPATIDE
     Indication: Inflammation
     Dates: start: 20241023, end: 20241211
  2. ZEPBOUND [Suspect]
     Active Substance: TIRZEPATIDE
     Indication: Obesity
  3. DULOXETINE [Concomitant]
     Active Substance: DULOXETINE
  4. ESTRACE [Concomitant]
     Active Substance: ESTRADIOL
  5. LEVOMEFOLIC ACID [Concomitant]
     Active Substance: LEVOMEFOLIC ACID
  6. MODAFINIL [Concomitant]
     Active Substance: MODAFINIL
  7. LEVOTHYROXINE [Concomitant]
     Active Substance: LEVOTHYROXINE
  8. LIOTHYRONINE [Concomitant]
     Active Substance: LIOTHYRONINE
  9. METFORMIN [Concomitant]
     Active Substance: METFORMIN HYDROCHLORIDE
  10. PANTOPRAZOLE [Concomitant]
     Active Substance: PANTOPRAZOLE
  11. PRAZOSIN [Concomitant]
     Active Substance: PRAZOSIN
  12. TRIAMTERENE [Concomitant]
     Active Substance: TRIAMTERENE
  13. ALPRAZOLAM [Concomitant]
     Active Substance: ALPRAZOLAM
  14. BUSPAR [Concomitant]
     Active Substance: BUSPIRONE HYDROCHLORIDE
  15. VITAMIN B COMPLEX [Concomitant]
     Active Substance: CYANOCOBALAMIN\DEXPANTHENOL\NIACINAMIDE\PYRIDOXINE HYDROCHLORIDE\RIBOFLAVIN 5^-PHOSPHATE SODIUM\THIA
  16. PRASTERONE [Concomitant]
     Active Substance: PRASTERONE
  17. VITAMIN D3 [Concomitant]
     Active Substance: CHOLECALCIFEROL
  18. FISH OIL [Concomitant]
     Active Substance: FISH OIL
  19. MAGNESIUM MALATE [Concomitant]
     Active Substance: MAGNESIUM MALATE

REACTIONS (18)
  - Nausea [None]
  - Taste disorder [None]
  - Abdominal discomfort [None]
  - Brain fog [None]
  - Feeling abnormal [None]
  - Disturbance in attention [None]
  - Lethargy [None]
  - Depressed level of consciousness [None]
  - Sluggishness [None]
  - Bradyphrenia [None]
  - Confusional state [None]
  - Distractibility [None]
  - Memory impairment [None]
  - Abulia [None]
  - Loss of personal independence in daily activities [None]
  - Incoherent [None]
  - Dysgraphia [None]
  - Speech disorder [None]

NARRATIVE: CASE EVENT DATE: 20241115
